FAERS Safety Report 14617080 (Version 2)
Quarter: 2018Q1

REPORT INFORMATION
  Report Type: Spontaneous
  Country: JP (occurrence: JP)
  Receive Date: 20180309
  Receipt Date: 20180319
  Transmission Date: 20180509
  Serious: Yes (Other)
  Sender: FDA-Public Use
  Company Number: PHJP2018JP005411

PATIENT
  Sex: Male

DRUGS (1)
  1. NEORAL [Suspect]
     Active Substance: CYCLOSPORINE
     Indication: MYELODYSPLASTIC SYNDROME
     Dosage: 125 MG, UNK
     Route: 048

REACTIONS (4)
  - Ascites [Unknown]
  - Fluid retention [Unknown]
  - Oedema [Unknown]
  - Product use in unapproved indication [Unknown]
